FAERS Safety Report 5852033-6 (Version None)
Quarter: 2008Q3

REPORT INFORMATION
  Report Type: 
  Country: None (occurrence: None)
  Receive Date: 20080820
  Receipt Date: 20080813
  Transmission Date: 20090109
  Serious: Yes (Other)
  Sender: FDA-Public Use
  Company Number: CA-PFIZER INC-2008068362

PATIENT
  Age: 59 Year
  Sex: Female

DRUGS (2)
  1. LIPITOR [Suspect]
     Route: 048
     Dates: start: 20080801, end: 20080801
  2. VITAMIN TAB [Concomitant]

REACTIONS (1)
  - MONOPLEGIA [None]
